FAERS Safety Report 19226656 (Version 1)
Quarter: 2021Q2

REPORT INFORMATION
  Report Type: Other
  Country: GB (occurrence: GB)
  Receive Date: 20210506
  Receipt Date: 20210506
  Transmission Date: 20210717
  Serious: No
  Sender: FDA-Public Use
  Company Number: GB-LUPIN PHARMACEUTICALS INC.-2021-05761

PATIENT
  Age: 42 Year
  Sex: Male
  Weight: 154 kg

DRUGS (2)
  1. ASTRAZENECA COVID?19 VACCINE [Concomitant]
     Active Substance: AZD-1222
     Indication: COVID-19 IMMUNISATION
     Dosage: UNK (1 DOSE BY INTRAMUSCULAR INJECTION)
     Route: 030
     Dates: start: 20210219
  2. SERTRALINE 50 MG TABLETS [Suspect]
     Active Substance: SERTRALINE HYDROCHLORIDE
     Indication: PRODUCT USED FOR UNKNOWN INDICATION
     Dosage: 50 MILLIGRAM, QD (ONE TO BE TAKEN EACH DAY)
     Route: 065
     Dates: start: 20210413

REACTIONS (3)
  - Malaise [Recovered/Resolved]
  - Chills [Unknown]
  - Muscular weakness [Unknown]

NARRATIVE: CASE EVENT DATE: 20210415
